FAERS Safety Report 19446742 (Version 1)
Quarter: 2021Q2

REPORT INFORMATION
  Report Type: Spontaneous
  Country: AU (occurrence: AU)
  Receive Date: 20210622
  Receipt Date: 20210622
  Transmission Date: 20210717
  Serious: Yes (Other)
  Sender: FDA-Public Use
  Company Number: NVSC2021AU138848

PATIENT
  Weight: 2.7 kg

DRUGS (4)
  1. GEMFIBROZIL. [Suspect]
     Active Substance: GEMFIBROZIL
     Indication: FOETAL EXPOSURE DURING PREGNANCY
     Dosage: MATERNAL DOSE:UNK
     Route: 064
  2. ATORVASTATIN [Suspect]
     Active Substance: ATORVASTATIN
     Indication: FOETAL EXPOSURE DURING PREGNANCY
     Dosage: MATERNAL DOSE:UNK
     Route: 064
  3. DEXTROSE. [Suspect]
     Active Substance: DEXTROSE
     Indication: FOETAL EXPOSURE DURING PREGNANCY
     Dosage: MATERNAL DOSE:UNK
     Route: 064
  4. INSULIN [Suspect]
     Active Substance: INSULIN NOS
     Indication: FOETAL EXPOSURE DURING PREGNANCY
     Dosage: MATERNAL DOSE: UNK
     Route: 064

REACTIONS (2)
  - Foetal exposure during pregnancy [Unknown]
  - Premature baby [Unknown]
